FAERS Safety Report 13150409 (Version 1)
Quarter: 2017Q1

REPORT INFORMATION
  Report Type: Spontaneous
  Country: US (occurrence: US)
  Receive Date: 20170125
  Receipt Date: 20170125
  Transmission Date: 20170428
  Serious: No
  Sender: FDA-Public Use
  Company Number: US-PFIZER INC-2017026153

PATIENT
  Sex: Female
  Weight: 86 kg

DRUGS (1)
  1. ERAXIS [Suspect]
     Active Substance: ANIDULAFUNGIN
     Indication: FUNGAEMIA
     Dosage: UNK, 1X/DAY, IV INFUSION THROUGH PICC
     Route: 042
     Dates: start: 201611, end: 201612

REACTIONS (15)
  - Skin irritation [Not Recovered/Not Resolved]
  - Infusion site rash [Not Recovered/Not Resolved]
  - Scab [Recovering/Resolving]
  - Wound secretion [Recovered/Resolved]
  - Pruritus [Not Recovered/Not Resolved]
  - Erythema [Unknown]
  - Skin discolouration [Not Recovered/Not Resolved]
  - Hypersensitivity [Unknown]
  - Rash [Recovering/Resolving]
  - Rash [Unknown]
  - Skin haemorrhage [Recovered/Resolved]
  - Skin exfoliation [Not Recovered/Not Resolved]
  - Pruritus [Recovering/Resolving]
  - Skin fissures [Recovering/Resolving]
  - Skin exfoliation [Recovering/Resolving]

NARRATIVE: CASE EVENT DATE: 201611
